FAERS Safety Report 22060654 (Version 2)
Quarter: 2023Q1

REPORT INFORMATION
  Report Type: Report from Study
  Country: US (occurrence: US)
  Receive Date: 20230303
  Receipt Date: 20230306
  Transmission Date: 20230417
  Serious: No
  Sender: FDA-Public Use
  Company Number: US-002147023-NVSC2023US049890

PATIENT
  Sex: Female

DRUGS (1)
  1. PIQRAY [Suspect]
     Active Substance: ALPELISIB
     Dosage: UNK
     Route: 065

REACTIONS (3)
  - Vomiting [Unknown]
  - Diarrhoea [Unknown]
  - Weight decreased [Unknown]
